FAERS Safety Report 7984366-1 (Version None)
Quarter: 2011Q4

REPORT INFORMATION
  Report Type: 
  Country: None (occurrence: None)
  Receive Date: 20111216
  Receipt Date: 20111208
  Transmission Date: 20120403
  Serious: Yes (Hospitalization, Other)
  Sender: FDA-Public Use
  Company Number: US-JNJFOC-20111205952

PATIENT
  Age: 12 Year
  Sex: Female

DRUGS (30)
  1. DOXORUBICIN HCL [Suspect]
     Dosage: CYCLE 3
     Route: 042
  2. CYCLOPHOSPHAMIDE [Suspect]
     Indication: EWING'S SARCOMA
     Route: 065
  3. CYCLOPHOSPHAMIDE [Suspect]
     Route: 065
  4. CYCLOPHOSPHAMIDE [Suspect]
     Dosage: DOSE DELAYED
     Route: 065
  5. ETOPOSIDE [Suspect]
     Route: 065
  6. IFOSFAMIDE [Suspect]
     Route: 065
  7. IFOSFAMIDE [Suspect]
     Route: 065
  8. VINCRISTINE [Suspect]
     Route: 065
  9. CYCLOPHOSPHAMIDE [Suspect]
     Route: 065
  10. DOXORUBICIN HCL [Suspect]
     Dosage: CYCLE 4
     Route: 042
  11. DOXORUBICIN HCL [Suspect]
     Dosage: CYCLE 5
     Route: 042
  12. DOXORUBICIN HCL [Suspect]
     Indication: EWING'S SARCOMA
     Dosage: CYCLE 1
     Route: 042
  13. DOXORUBICIN HCL [Suspect]
     Dosage: CYCLE 2, DOSE DELAYED
     Route: 042
  14. VINCRISTINE [Suspect]
     Route: 065
  15. CYCLOPHOSPHAMIDE [Suspect]
     Route: 065
  16. CYCLOPHOSPHAMIDE [Suspect]
     Route: 065
  17. ETOPOSIDE [Suspect]
     Indication: EWING'S SARCOMA
     Route: 065
  18. IFOSFAMIDE [Suspect]
     Indication: EWING'S SARCOMA
     Route: 065
  19. VINCRISTINE [Suspect]
     Indication: EWING'S SARCOMA
     Route: 065
  20. VINCRISTINE [Suspect]
     Route: 065
  21. ETOPOSIDE [Suspect]
     Route: 065
  22. ETOPOSIDE [Suspect]
     Dosage: DOSE DELAYED
     Route: 065
  23. IFOSFAMIDE [Suspect]
     Route: 065
  24. VINCRISTINE [Suspect]
     Dosage: DOSE DELAYED
     Route: 065
  25. ETOPOSIDE [Suspect]
     Route: 065
  26. IFOSFAMIDE [Suspect]
     Route: 065
  27. DOXORUBICIN HCL [Suspect]
     Dosage: CYCLE 5
     Route: 042
  28. VINCRISTINE [Suspect]
     Route: 065
  29. ETOPOSIDE [Suspect]
     Route: 065
  30. IFOSFAMIDE [Suspect]
     Dosage: DOSE DELAYED
     Route: 065

REACTIONS (2)
  - FEBRILE NEUTROPENIA [None]
  - CELLULITIS [None]
